FAERS Safety Report 9635948 (Version 2)
Quarter: 2013Q4

REPORT INFORMATION
  Report Type: Spontaneous
  Country: US (occurrence: US)
  Receive Date: 20131021
  Receipt Date: 20131130
  Transmission Date: 20140711
  Serious: No
  Sender: FDA-Public Use
  Company Number: US-009507513-1310USA004840

PATIENT
  Sex: Female

DRUGS (3)
  1. PEGINTRON [Suspect]
     Indication: HEPATITIS C
     Dosage: REDIPEN
     Dates: start: 20130912
  2. REBETOL [Suspect]
     Indication: HEPATITIS C
     Dosage: UNK
     Route: 048
     Dates: start: 20130912
  3. TELAPREVIR [Suspect]
     Indication: HEPATITIS C
     Dosage: UNK
     Dates: start: 20130912

REACTIONS (13)
  - Coordination abnormal [Unknown]
  - Lethargy [Unknown]
  - Mental status changes [Unknown]
  - Nervous system disorder [Unknown]
  - Adverse reaction [Unknown]
  - Confusional state [Unknown]
  - Pain [Unknown]
  - Vomiting [Unknown]
  - Influenza like illness [Unknown]
  - Asthenia [Unknown]
  - Abdominal pain upper [Unknown]
  - Abdominal discomfort [Unknown]
  - Nausea [Unknown]
